FAERS Safety Report 23494926 (Version 4)
Quarter: 2024Q2

REPORT INFORMATION
  Report Type: Spontaneous
  Country: FR (occurrence: None)
  Receive Date: 20240207
  Receipt Date: 20240610
  Transmission Date: 20240716
  Serious: Yes (Other)
  Sender: FDA-Public Use
  Company Number: 2024A004426

PATIENT
  Age: 4 Month
  Sex: Male
  Weight: 7.4 kg

DRUGS (4)
  1. BEYFORTUS [Suspect]
     Active Substance: NIRSEVIMAB-ALIP
     Indication: Antiviral prophylaxis
     Dosage: 100 MG, TOTAL100.0MG ONCE/SINGLE ADMINISTRATION
     Route: 030
     Dates: start: 20231011, end: 20231011
  2. AZITHROMYCIN [Concomitant]
     Active Substance: AZITHROMYCIN
     Indication: Conjunctivitis
  3. VITAMIN D3 [Concomitant]
     Active Substance: CHOLECALCIFEROL
     Dosage: 3 GTT DROPS, QD
  4. LACTULOSE [Concomitant]
     Active Substance: LACTULOSE
     Dosage: UNK, QD, 1 TO 5 ML PER DAY

REACTIONS (5)
  - Respiratory syncytial virus bronchiolitis [Recovered/Resolved]
  - Respiratory syncytial virus test positive [Unknown]
  - Nasopharyngitis [Recovered/Resolved]
  - Ear infection [Recovered/Resolved]
  - Conjunctivitis [Recovered/Resolved]

NARRATIVE: CASE EVENT DATE: 20240102
